FAERS Safety Report 13573294 (Version 1)
Quarter: 2017Q2

REPORT INFORMATION
  Report Type: Spontaneous
  Country: US (occurrence: US)
  Receive Date: 20170523
  Receipt Date: 20170523
  Transmission Date: 20170830
  Serious: No
  Sender: FDA-Public Use
  Company Number: US-RAPTOR PHARMACEUTICALS, INC.-RAP-001164-2016

PATIENT
  Age: 13 Year
  Sex: Male
  Weight: 44.9 kg

DRUGS (6)
  1. SODIUM BICARBONATE. [Concomitant]
     Active Substance: SODIUM BICARBONATE
     Indication: PRODUCT USED FOR UNKNOWN INDICATION
     Dosage: 3 TABLETS. TWICE DAILY
     Route: 065
  2. PROCYSBI DELAYED-RELEASE [Suspect]
     Active Substance: CYSTEAMINE BITARTRATE
     Indication: AMINO ACID METABOLISM DISORDER
     Dosage: 12 CAPSULES EVERY 12 HOURS
     Route: 048
     Dates: start: 201409
  3. LISINOPRIL. [Concomitant]
     Active Substance: LISINOPRIL
     Indication: PRODUCT USED FOR UNKNOWN INDICATION
     Dosage: 5 MG, DAILY
     Route: 065
  4. LEVO-CARNITINE [Concomitant]
     Indication: PRODUCT USED FOR UNKNOWN INDICATION
     Dosage: 5 DF, BID
     Route: 065
  5. CALCITRIOL. [Concomitant]
     Active Substance: CALCITRIOL
     Indication: PRODUCT USED FOR UNKNOWN INDICATION
     Dosage: 0.5 MCG, DAILY
     Route: 065
  6. PROCYSBI DELAYED-RELEASE [Suspect]
     Active Substance: CYSTEAMINE BITARTRATE
     Dosage: DOSE WAS INCREASED BY 1-2 CAPSULES TO HIS PRESENT DOSE
     Route: 048

REACTIONS (4)
  - Vomiting [Unknown]
  - Hypothyroidism [Unknown]
  - Labelled drug-drug interaction medication error [Unknown]
  - Amino acid level abnormal [Unknown]

NARRATIVE: CASE EVENT DATE: 20160829
